FAERS Safety Report 8322494-1 (Version None)
Quarter: 2012Q2

REPORT INFORMATION
  Report Type: 
  Country: None (occurrence: None)
  Receive Date: 20120430
  Receipt Date: 20120424
  Transmission Date: 20120825
  Serious: Yes (Other)
  Sender: FDA-Public Use
  Company Number: FR-B.I. PHARMACEUTICALS,INC./RIDGEFIELD-2012-FF-00498FF

PATIENT
  Sex: Female
  Weight: 82 kg

DRUGS (3)
  1. PRADAXA [Suspect]
     Indication: JOINT ARTHROPLASTY
  2. PRADAXA [Suspect]
     Indication: THROMBOSIS PROPHYLAXIS
     Dosage: 220 MG
     Route: 048
     Dates: start: 20110303, end: 20110308
  3. ANTALGIC (NO NSAID) [Concomitant]

REACTIONS (1)
  - VENOUS THROMBOSIS LIMB [None]
